FAERS Safety Report 7275429-7 (Version None)
Quarter: 2011Q1

REPORT INFORMATION
  Report Type: 
  Country: None (occurrence: None)
  Receive Date: 20110204
  Receipt Date: 20110126
  Transmission Date: 20110831
  Serious: Yes (Death)
  Sender: FDA-Public Use
  Company Number: JP-ROCHE-756224

PATIENT
  Age: 54 Year
  Sex: Female

DRUGS (5)
  1. CYCLOSPORINE [Concomitant]
     Dosage: PERORAL AGENT
     Route: 048
  2. CELLCEPT [Suspect]
     Indication: PROPHYLAXIS AGAINST TRANSPLANT REJECTION
     Route: 048
  3. CYCLOSPORINE [Concomitant]
     Dosage: INJECTION
     Route: 048
  4. TACROLIMUS [Concomitant]
     Dosage: PERORAL AGENT
     Route: 048
  5. BASILIXIMAB [Concomitant]
     Dosage: DOSAGE IS UNCERTAIN
     Route: 041

REACTIONS (6)
  - METASTASES TO KIDNEY [None]
  - METASTASES TO ABDOMINAL CAVITY [None]
  - HEPATIC NEOPLASM MALIGNANT [None]
  - HEPATITIS B [None]
  - METASTASES TO LUNG [None]
  - HEPATIC NEOPLASM MALIGNANT RECURRENT [None]
